FAERS Safety Report 12196425 (Version 1)
Quarter: 2016Q1

REPORT INFORMATION
  Report Type: Report from Study
  Country: NL (occurrence: NL)
  Receive Date: 20160321
  Receipt Date: 20160321
  Transmission Date: 20160526
  Serious: Yes (Hospitalization, Other)
  Sender: FDA-Public Use
  Company Number: NL-BRISTOL-MYERS SQUIBB COMPANY-BMS-2016-019442

PATIENT
  Age: 66 Year
  Sex: Male

DRUGS (1)
  1. NIVOLUMAB [Suspect]
     Active Substance: NIVOLUMAB
     Indication: PRODUCT USED FOR UNKNOWN INDICATION
     Dosage: 3 MG/KG, Q2WK
     Route: 042
     Dates: start: 20151105

REACTIONS (6)
  - Pyrexia [Recovering/Resolving]
  - Orthostatic hypotension [Unknown]
  - Urinary tract infection [Unknown]
  - Syncope [Recovering/Resolving]
  - Adrenal insufficiency [Unknown]
  - Pneumonia [Unknown]

NARRATIVE: CASE EVENT DATE: 20160306
